FAERS Safety Report 7078288-0 (Version None)
Quarter: 2010Q4

REPORT INFORMATION
  Report Type: 
  Country: None (occurrence: None)
  Receive Date: 20101101
  Receipt Date: 20101101
  Transmission Date: 20110411
  Serious: Yes (Hospitalization)
  Sender: FDA-Public Use
  Company Number: None

PATIENT
  Age: 52 Year
  Sex: Female
  Weight: 87.9978 kg

DRUGS (12)
  1. RECLAST [Suspect]
     Indication: OSTEOPOROSIS
     Dosage: I DON'T KNOW-IV INFUSION ANNUALLY IV DRIP
     Route: 041
     Dates: start: 20100914, end: 20100914
  2. LETAIRIS [Concomitant]
  3. LEXAPRO [Concomitant]
  4. LISINOPRIL [Concomitant]
  5. OMEPRAZOLE [Concomitant]
  6. TRAZODONE HCL [Concomitant]
  7. PROPXYPHEN [Concomitant]
  8. TRAZODONE HCL [Concomitant]
  9. PROPXYPHEN [Concomitant]
  10. MULTI-VITAMIN [Concomitant]
  11. CALCIUM [Concomitant]
  12. VITAMIN D [Concomitant]

REACTIONS (6)
  - DYSPNOEA [None]
  - INHIBITORY DRUG INTERACTION [None]
  - JOINT SWELLING [None]
  - PAIN [None]
  - PYREXIA [None]
  - QUALITY OF LIFE DECREASED [None]
